FAERS Safety Report 11455683 (Version 1)
Quarter: 2015Q3

REPORT INFORMATION
  Report Type: Spontaneous
  Country: US (occurrence: US)
  Receive Date: 20150903
  Receipt Date: 20150903
  Transmission Date: 20151125
  Serious: No
  Sender: FDA-Public Use
  Company Number: US-BEH-2015049070

PATIENT
  Sex: Female
  Weight: 78 kg

DRUGS (22)
  1. DIPHENHYDRAMINE. [Concomitant]
     Active Substance: DIPHENHYDRAMINE
  2. ZITHROMAX [Concomitant]
     Active Substance: AZITHROMYCIN DIHYDRATE
  3. OXYGEN. [Concomitant]
     Active Substance: OXYGEN
  4. PREDNISONE. [Concomitant]
     Active Substance: PREDNISONE
  5. PREVACID [Concomitant]
     Active Substance: LANSOPRAZOLE
  6. ACETAMINOPHEN. [Concomitant]
     Active Substance: ACETAMINOPHEN
  7. GAMUNEX [Concomitant]
     Active Substance: HUMAN IMMUNOGLOBULIN G
  8. ZEMAIRA [Suspect]
     Active Substance: .ALPHA.1-PROTEINASE INHIBITOR HUMAN
     Indication: ALPHA-1 ANTI-TRYPSIN DEFICIENCY
     Route: 042
  9. EPIPEN [Concomitant]
     Active Substance: EPINEPHRINE
  10. CITALOPRAM [Concomitant]
     Active Substance: CITALOPRAM HYDROBROMIDE
  11. HEPARIN [Concomitant]
     Active Substance: HEPARIN SODIUM
  12. AMOXICILLIN. [Concomitant]
     Active Substance: AMOXICILLIN
  13. PANTOPRAZOLE SOD DR [Concomitant]
  14. PROVENTIL HFA [Concomitant]
     Active Substance: ALBUTEROL SULFATE
     Route: 054
  15. SYMBICORT [Concomitant]
     Active Substance: BUDESONIDE\FORMOTEROL FUMARATE DIHYDRATE
     Dosage: 160-4.5 UG
     Route: 055
  16. SODIUM CHLORIDE 0.9% [Concomitant]
     Active Substance: SODIUM CHLORIDE
  17. OXAZEPAM. [Concomitant]
     Active Substance: OXAZEPAM
  18. LISINOPRIL. [Concomitant]
     Active Substance: LISINOPRIL
  19. LIDOCAINE 4% [Concomitant]
  20. KEFLEX [Concomitant]
     Active Substance: CEPHALEXIN
  21. NASONEX [Concomitant]
     Active Substance: MOMETASONE FUROATE
     Route: 045
  22. ALBUTEROL. [Concomitant]
     Active Substance: ALBUTEROL
     Dosage: 0.083%
     Route: 055

REACTIONS (4)
  - Excoriation [Unknown]
  - Infusion site erythema [Unknown]
  - Infusion site mass [Unknown]
  - Infusion site pain [Unknown]
